FAERS Safety Report 13556699 (Version 1)
Quarter: 2017Q2

REPORT INFORMATION
  Report Type: Spontaneous
  Country: US (occurrence: US)
  Receive Date: 20170517
  Receipt Date: 20170517
  Transmission Date: 20170830
  Serious: Yes (Hospitalization)
  Sender: FDA-Public Use
  Company Number: None

PATIENT
  Age: 55 Year
  Sex: Male
  Weight: 81.6 kg

DRUGS (1)
  1. TEMOZOLOMIDE. [Suspect]
     Active Substance: TEMOZOLOMIDE
     Dates: end: 20170421

REACTIONS (5)
  - Cough [None]
  - Fall [None]
  - Lethargy [None]
  - Inappropriate schedule of drug administration [None]
  - Pyrexia [None]

NARRATIVE: CASE EVENT DATE: 20170508
